FAERS Safety Report 9715697 (Version 2)
Quarter: 2014Q1

REPORT INFORMATION
  Report Type: Spontaneous
  Country: GB (occurrence: GB)
  Receive Date: 20131127
  Receipt Date: 20140123
  Transmission Date: 20141002
  Serious: Yes (Death)
  Sender: FDA-Public Use
  Company Number: GB-ACCORD-020428

PATIENT
  Sex: Female

DRUGS (3)
  1. DOCETAXEL [Suspect]
     Indication: BREAST CANCER METASTATIC
     Route: 065
  2. HERCEPTIN [Suspect]
     Indication: BREAST CANCER METASTATIC
     Dosage: INFUSION SOLUTION
     Route: 065
  3. PERJETA [Suspect]
     Indication: BREAST CANCER METASTATIC
     Dosage: INFUSION SOLUTION
     Route: 065

REACTIONS (1)
  - Disease progression [Fatal]
